FAERS Safety Report 9767772 (Version 2)
Quarter: 2014Q1

REPORT INFORMATION
  Report Type: Spontaneous
  Country: US (occurrence: US)
  Receive Date: 20131217
  Receipt Date: 20140319
  Transmission Date: 20141002
  Serious: No
  Sender: FDA-Public Use
  Company Number: US-009507513-1312USA006952

PATIENT
  Age: 11 Year
  Sex: Male

DRUGS (2)
  1. MIRALAX [Suspect]
     Indication: CONSTIPATION
     Dosage: UNK, QD
     Route: 048
     Dates: start: 201309, end: 20131204
  2. MIRALAX [Suspect]
     Dosage: UNK
     Route: 048
     Dates: start: 20131202, end: 20131204

REACTIONS (4)
  - Drug administered to patient of inappropriate age [Unknown]
  - Off label use [Unknown]
  - Incorrect drug administration duration [Unknown]
  - Product odour abnormal [Unknown]
